FAERS Safety Report 9230975 (Version 1)
Quarter: 2013Q2

REPORT INFORMATION
  Report Type: Spontaneous
  Country: US (occurrence: US)
  Receive Date: 20130415
  Receipt Date: 20130415
  Transmission Date: 20140414
  Serious: Yes (Death, Hospitalization)
  Sender: FDA-Public Use
  Company Number: US-ASTRAZENECA-2013SE23938

PATIENT
  Sex: 0

DRUGS (3)
  1. BRILINTA [Suspect]
     Route: 048
  2. ANGIOMAX [Concomitant]
  3. ASPIRIN [Concomitant]

REACTIONS (2)
  - Death [Fatal]
  - Cerebrovascular accident [Unknown]
